FAERS Safety Report 16880016 (Version 2)
Quarter: 2019Q4

REPORT INFORMATION
  Report Type: Spontaneous
  Country: US (occurrence: US)
  Receive Date: 20191003
  Receipt Date: 20191110
  Transmission Date: 20200122
  Serious: Yes (Life-Threatening, Hospitalization, Other)
  Sender: FDA-Public Use
  Company Number: US-DRREDDYS-USA/USA/19/0114684

PATIENT
  Age: 78 Year
  Sex: Female
  Weight: 88.1 kg

DRUGS (7)
  1. APIXABAN [Interacting]
     Active Substance: APIXABAN
     Indication: PULMONARY EMBOLISM
     Route: 065
  2. ROMIPLOSTIM [Concomitant]
     Active Substance: ROMIPLOSTIM
     Indication: IMMUNE THROMBOCYTOPENIC PURPURA
     Route: 065
  3. FUROSEMIDE. [Concomitant]
     Active Substance: FUROSEMIDE
     Indication: PRODUCT USED FOR UNKNOWN INDICATION
  4. LEVETIRACETAM. [Concomitant]
     Active Substance: LEVETIRACETAM
     Indication: PRODUCT USED FOR UNKNOWN INDICATION
     Route: 065
  5. METOPROLOL TARTRATE. [Concomitant]
     Active Substance: METOPROLOL TARTRATE
     Indication: PULMONARY ARTERIAL HYPERTENSION
  6. DILTIAZEM HYDROCHLORIDE. [Suspect]
     Active Substance: DILTIAZEM HYDROCHLORIDE
     Indication: PULMONARY ARTERIAL HYPERTENSION
  7. METOLAZONE. [Concomitant]
     Active Substance: METOLAZONE
     Indication: PRODUCT USED FOR UNKNOWN INDICATION

REACTIONS (11)
  - Cardiac failure [Recovered/Resolved]
  - Pericardial effusion [Recovered/Resolved]
  - Electrocardiogram QRS complex abnormal [Recovered/Resolved]
  - Sepsis [Recovered/Resolved]
  - International normalised ratio increased [Recovered/Resolved]
  - Pericardial haemorrhage [Recovered/Resolved]
  - Atrial fibrillation [Recovered/Resolved]
  - QRS axis abnormal [Recovered/Resolved]
  - Prothrombin time prolonged [Recovered/Resolved]
  - Pleural effusion [Recovered/Resolved]
  - Drug interaction [Recovered/Resolved]
